FAERS Safety Report 25566792 (Version 1)
Quarter: 2025Q3

REPORT INFORMATION
  Report Type: Spontaneous
  Country: CN (occurrence: CN)
  Receive Date: 20250716
  Receipt Date: 20250716
  Transmission Date: 20251021
  Serious: Yes (Other)
  Sender: ALEXION PHARMACEUTICALS
  Company Number: CN-AstraZeneca-2024A088735

PATIENT
  Sex: Male

DRUGS (1)
  1. KOSELUGO [Suspect]
     Active Substance: SELUMETINIB

REACTIONS (8)
  - Urticaria [Recovered/Resolved]
  - Mouth ulceration [Recovered/Resolved]
  - Paronychia [Recovered/Resolved]
  - Dry skin [Recovered/Resolved]
  - Blood creatine phosphokinase increased [Recovered/Resolved]
  - Rash [Recovered/Resolved]
  - Diarrhoea [Recovered/Resolved]
  - Folliculitis [Recovered/Resolved]
